FAERS Safety Report 14563731 (Version 2)
Quarter: 2018Q1

REPORT INFORMATION
  Report Type: Spontaneous
  Country: IT (occurrence: IT)
  Receive Date: 20180222
  Receipt Date: 20180305
  Transmission Date: 20180509
  Serious: Yes (Congenital Anomaly)
  Sender: FDA-Public Use
  Company Number: IT-SA-2018SA044726

PATIENT
  Age: 31 Year
  Sex: Female

DRUGS (4)
  1. PROGEFFIK [Concomitant]
     Active Substance: PROGESTERONE
     Route: 048
     Dates: start: 20170801, end: 20171124
  2. PREFOLIC [Concomitant]
     Active Substance: LEUCOVORIN CALCIUM
     Route: 048
     Dates: start: 20170801, end: 20171124
  3. HUMALOG [Suspect]
     Active Substance: INSULIN LISPRO
     Indication: DIABETES MELLITUS
     Route: 058
     Dates: start: 20170908, end: 20171109
  4. LANTUS [Suspect]
     Active Substance: INSULIN GLARGINE
     Indication: DIABETES MELLITUS
     Route: 051
     Dates: start: 20170908, end: 20171109

REACTIONS (1)
  - Kidney malformation [Unknown]

NARRATIVE: CASE EVENT DATE: 20171004
